FAERS Safety Report 7332905-6 (Version None)
Quarter: 2011Q1

REPORT INFORMATION
  Report Type: 
  Country: None (occurrence: None)
  Receive Date: 20110304
  Receipt Date: 20110209
  Transmission Date: 20110831
  Serious: Yes (Hospitalization)
  Sender: FDA-Public Use
  Company Number: PHHO2010US19810

PATIENT
  Sex: Male
  Weight: 86 kg

DRUGS (3)
  1. ALLOPURINOL [Concomitant]
     Indication: GOUT
  2. ACZ885 [Suspect]
     Indication: GOUT
     Dosage: 150 MG, PRN
     Route: 058
     Dates: start: 20101213, end: 20101220
  3. COLCHICINE [Concomitant]
     Indication: GOUT
     Dosage: UNK

REACTIONS (2)
  - FATIGUE [None]
  - ANAEMIA [None]
